FAERS Safety Report 25423167 (Version 4)
Quarter: 2025Q3

REPORT INFORMATION
  Report Type: Spontaneous
  Country: US (occurrence: US)
  Receive Date: 20250611
  Receipt Date: 20250717
  Transmission Date: 20251021
  Serious: No
  Sender: PFIZER
  Company Number: US-PFIZER INC-202500071995

PATIENT
  Age: 13 Year
  Sex: Female

DRUGS (2)
  1. GENOTROPIN [Suspect]
     Active Substance: SOMATROPIN
     Indication: Hypopituitarism
     Dosage: 1.3 MG/DAY, NIGHTLY DAYS/WEEK
  2. GENOTROPIN [Suspect]
     Active Substance: SOMATROPIN
     Indication: Growth hormone deficiency
     Dates: start: 202505

REACTIONS (4)
  - Product prescribing error [Unknown]
  - Device mechanical issue [Unknown]
  - Wrong technique in device usage process [Unknown]
  - Drug dose omission by device [Unknown]
